FAERS Safety Report 5013617-0 (Version None)
Quarter: 2006Q2

REPORT INFORMATION
  Report Type: 
  Country: None (occurrence: None)
  Receive Date: 20060530
  Receipt Date: 20041203
  Transmission Date: 20061013
  Serious: Yes (Other)
  Sender: FDA-Public Use
  Company Number: GB-GLAXOSMITHKLINE-B0359534A

PATIENT
  Sex: Male

DRUGS (4)
  1. SEROXAT [Suspect]
     Route: 065
     Dates: start: 20010101
  2. PAROXETINE [Suspect]
     Route: 048
     Dates: start: 20030801
  3. CHLORDIAZEPOXIDE [Concomitant]
     Route: 065
  4. PROMETHAZINE [Concomitant]

REACTIONS (3)
  - COMPLETED SUICIDE [None]
  - ILL-DEFINED DISORDER [None]
  - INTENTIONAL SELF-INJURY [None]
